FAERS Safety Report 8952904 (Version 1)
Quarter: 2012Q4

REPORT INFORMATION
  Report Type: Report from Study
  Country: SE (occurrence: SE)
  Receive Date: 20121203
  Receipt Date: 20121203
  Transmission Date: 20130627
  Serious: Yes (Hospitalization)
  Sender: FDA-Public Use
  Company Number: SE-ABBOTT-12P-150-1013907-00

PATIENT
  Age: 25 Year
  Sex: Male
  Weight: 54 kg

DRUGS (7)
  1. HUMIRA [Suspect]
     Indication: CROHN^S DISEASE
     Dosage: BASELINE
     Route: 058
     Dates: start: 20090827, end: 20090827
  2. HUMIRA [Suspect]
     Dosage: WEEK 2
     Route: 058
  3. HUMIRA [Suspect]
     Route: 058
  4. HUMIRA [Suspect]
     Route: 058
     Dates: start: 20100217, end: 20101109
  5. QUESTRAN [Concomitant]
     Indication: DIARRHOEA
     Dates: start: 20051115
  6. IDEOS [Concomitant]
     Indication: SUPPLEMENTATION THERAPY
     Dates: start: 20090716
  7. METHOTREXATE [Concomitant]
     Indication: CROHN^S DISEASE
     Dates: end: 200505

REACTIONS (2)
  - Pyrexia [Recovered/Resolved]
  - Chills [Recovered/Resolved]
